FAERS Safety Report 9445128 (Version 1)
Quarter: 2013Q3

REPORT INFORMATION
  Report Type: Spontaneous
  Country: GB (occurrence: None)
  Receive Date: 20130802
  Receipt Date: 20130802
  Transmission Date: 20140515
  Serious: Yes (Hospitalization, Other)
  Sender: FDA-Public Use
  Company Number: 1812158

PATIENT
  Age: 70 Year
  Sex: Male
  Weight: 84.9 kg

DRUGS (1)
  1. OXALIPLATIN [Suspect]
     Indication: GASTRIC CANCER
     Route: 042
     Dates: start: 20130205, end: 20130205

REACTIONS (3)
  - Muscular weakness [None]
  - Throat irritation [None]
  - Paraesthesia [None]
